FAERS Safety Report 5845957-7 (Version None)
Quarter: 2008Q3

REPORT INFORMATION
  Report Type: 
  Country: None (occurrence: None)
  Receive Date: 20080814
  Receipt Date: 20080804
  Transmission Date: 20090109
  Serious: Yes (Death, Other)
  Sender: FDA-Public Use
  Company Number: US-PFIZER INC-2008059654

PATIENT
  Sex: Male
  Weight: 122.9 kg

DRUGS (1)
  1. REVATIO [Suspect]
     Indication: PULMONARY HYPERTENSION
     Route: 048
     Dates: start: 20071201, end: 20080101

REACTIONS (3)
  - APNOEA [None]
  - ATRIAL FIBRILLATION [None]
  - DEATH [None]
